FAERS Safety Report 7982251-2 (Version None)
Quarter: 2011Q4

REPORT INFORMATION
  Report Type: 
  Country: None (occurrence: None)
  Receive Date: 20111215
  Receipt Date: 20111215
  Transmission Date: 20120403
  Serious: No
  Sender: FDA-Public Use
  Company Number: None

PATIENT
  Age: 69 Year
  Sex: Female
  Weight: 73.935 kg

DRUGS (1)
  1. XGEVA [Suspect]

REACTIONS (5)
  - FEELING COLD [None]
  - ASTHENIA [None]
  - DIARRHOEA [None]
  - PARAESTHESIA [None]
  - NAUSEA [None]
